FAERS Safety Report 6763156-1 (Version None)
Quarter: 2010Q2

REPORT INFORMATION
  Report Type: 
  Country: None (occurrence: None)
  Receive Date: 20100608
  Receipt Date: 20100608
  Transmission Date: 20101027
  Serious: No
  Sender: FDA-Public Use
  Company Number: None

PATIENT
  Age: 65 Year
  Sex: Male

DRUGS (1)
  1. RANEXA [Suspect]
     Indication: ANGINA PECTORIS
     Dosage: 500MG, 1 TABLET TWICE A DAY; PO
     Route: 048
     Dates: start: 20100201, end: 20100401

REACTIONS (6)
  - BACK PAIN [None]
  - BLOOD CREATINE PHOSPHOKINASE INCREASED [None]
  - IMPAIRED HEALING [None]
  - MYALGIA [None]
  - TINNITUS [None]
  - TREMOR [None]
